FAERS Safety Report 6136647-4 (Version None)
Quarter: 2009Q1

REPORT INFORMATION
  Report Type: 
  Country: None (occurrence: None)
  Receive Date: 20090330
  Receipt Date: 20090326
  Transmission Date: 20090719
  Serious: Yes (Life-Threatening, Disabling, Other)
  Sender: FDA-Public Use
  Company Number: B0552284A

PATIENT
  Age: 60 Year
  Sex: Female

DRUGS (13)
  1. ARTIST [Suspect]
     Route: 065
     Dates: start: 20070201
  2. ISONIAZID [Suspect]
     Indication: TUBERCULOSIS
     Dates: start: 20070201
  3. RIFAMPICIN [Suspect]
     Indication: TUBERCULOSIS
     Dates: start: 20070201
  4. TEMOCAPRIL [Suspect]
     Dates: start: 20070201
  5. PYRAZINAMIDE [Suspect]
     Indication: TUBERCULOSIS
     Dates: start: 20070201, end: 20070501
  6. AMLODIPINE BESYLATE [Suspect]
  7. CELIPROLOL [Suspect]
     Dates: start: 20070401
  8. ENALAPRIL [Suspect]
  9. LISINOPRIL [Suspect]
  10. ETHAMBUTOL HCL [Concomitant]
     Indication: TUBERCULOSIS
     Dates: start: 20070201, end: 20071001
  11. METHYLDOPA [Concomitant]
  12. DOXAZOSIN MESYLATE [Concomitant]
  13. VALSARTAN [Concomitant]

REACTIONS (5)
  - BLOOD PRESSURE INADEQUATELY CONTROLLED [None]
  - CEREBELLAR HAEMORRHAGE [None]
  - DRUG INTERACTION [None]
  - HEPATIC FAILURE [None]
  - HYPERTENSIVE ENCEPHALOPATHY [None]
